FAERS Safety Report 19608680 (Version 1)
Quarter: 2021Q3

REPORT INFORMATION
  Report Type: Spontaneous
  Country: US (occurrence: US)
  Receive Date: 20210724
  Receipt Date: 20210724
  Transmission Date: 20211014
  Serious: Yes (Disabling)
  Sender: FDA-Public Use
  Company Number: None

PATIENT
  Sex: Female
  Weight: 108 kg

DRUGS (1)
  1. ZYPREXA [Suspect]
     Active Substance: OLANZAPINE
     Indication: DISRUPTIVE MOOD DYSREGULATION DISORDER
     Dates: start: 20070201, end: 20070901

REACTIONS (5)
  - Insulin resistance [None]
  - Metabolic syndrome [None]
  - Polycystic ovaries [None]
  - Hyperlipidaemia [None]
  - Weight increased [None]
